FAERS Safety Report 10694820 (Version 2)
Quarter: 2015Q1

REPORT INFORMATION
  Report Type: Spontaneous
  Country: US (occurrence: US)
  Receive Date: 20150107
  Receipt Date: 20150212
  Transmission Date: 20150721
  Serious: No
  Sender: FDA-Public Use
  Company Number: US-ROXANE LABORATORIES, INC.-2015-RO-00011RO

PATIENT
  Sex: Male

DRUGS (1)
  1. OXYCODONE PARA [Suspect]
     Active Substance: ACETAMINOPHEN\OXYCODONE HYDROCHLORIDE
     Indication: PAIN
     Route: 048

REACTIONS (2)
  - Product quality issue [Unknown]
  - Drug ineffective [Unknown]
